FAERS Safety Report 10170126 (Version 2)
Quarter: 2014Q2

REPORT INFORMATION
  Report Type: Report from Study
  Country: JP (occurrence: JP)
  Receive Date: 20140513
  Receipt Date: 20140528
  Transmission Date: 20141212
  Serious: Yes (Hospitalization)
  Sender: FDA-Public Use
  Company Number: JP-GLAXOSMITHKLINE-B0992067A

PATIENT
  Age: 67 Year
  Sex: Male

DRUGS (4)
  1. GSK1120212 [Suspect]
     Indication: BILE DUCT CANCER
     Dosage: 2MG PER DAY
     Route: 048
     Dates: start: 20140204, end: 20140220
  2. GSK1120212 [Suspect]
     Indication: BILE DUCT CANCER
     Dosage: 1.5MG PER DAY
     Route: 048
     Dates: start: 20140221, end: 20140326
  3. GSK1120212 [Suspect]
     Indication: BILE DUCT CANCER
     Dosage: 1.5MG PER DAY
     Route: 048
     Dates: start: 20140404, end: 20140416
  4. GSK1120212 [Suspect]
     Indication: BILE DUCT CANCER
     Dosage: 1MG PER DAY
     Route: 048
     Dates: end: 20140501

REACTIONS (1)
  - Oesophageal varices haemorrhage [Recovered/Resolved]
